FAERS Safety Report 6858820-X (Version None)
Quarter: 2010Q3

REPORT INFORMATION
  Report Type: 
  Country: None (occurrence: None)
  Receive Date: 20100719
  Receipt Date: 20080213
  Transmission Date: 20110219
  Serious: No
  Sender: FDA-Public Use
  Company Number: US-PFIZER INC-2008014287

PATIENT
  Sex: Male
  Weight: 72.6 kg

DRUGS (14)
  1. CHANTIX [Suspect]
     Indication: SMOKING CESSATION THERAPY
     Dates: start: 20080101
  2. ACYCLOVIR [Concomitant]
  3. PROGRAF [Concomitant]
  4. COREG [Concomitant]
  5. SEPTRA [Concomitant]
  6. PROTONIX [Concomitant]
  7. DIGOXIN [Concomitant]
  8. PREDNISONE [Concomitant]
  9. ALL OTHER THERAPEUTIC PRODUCTS [Concomitant]
  10. HYDRALAZINE HCL [Concomitant]
  11. LIPITOR [Concomitant]
  12. FLORINEF [Concomitant]
     Dosage: 1 EVERY 3 DAYS
  13. LOPERAMIDE [Concomitant]
  14. ZETIA [Concomitant]

REACTIONS (1)
  - HEADACHE [None]
